FAERS Safety Report 4644403-9 (Version None)
Quarter: 2005Q2

REPORT INFORMATION
  Report Type: 
  Country: None (occurrence: None)
  Receive Date: 20050331
  Receipt Date: 20041222
  Transmission Date: 20051028
  Serious: No
  Sender: FDA-Public Use
  Company Number: 04P-163-0283388-00

PATIENT
  Age: 65 Year
  Sex: Female

DRUGS (6)
  1. HUMIRA [Suspect]
     Indication: RHEUMATOID ARTHRITIS
     Dosage: 40 MG, 1 IN 2 WK, SUBCUTANEOUS
     Route: 058
     Dates: start: 20041001, end: 20041204
  2. AMLODIPINE BESYLATE [Concomitant]
  3. TOPRIL XL [Concomitant]
  4. DIOVAN [Concomitant]
  5. ACIPITEX [Concomitant]
  6. IBUPROFEN [Concomitant]

REACTIONS (3)
  - INJECTION SITE ERYTHEMA [None]
  - PRURITUS [None]
  - RASH [None]
